FAERS Safety Report 15778194 (Version 4)
Quarter: 2019Q3

REPORT INFORMATION
  Report Type: Spontaneous
  Country: FR (occurrence: FR)
  Receive Date: 20181231
  Receipt Date: 20190906
  Transmission Date: 20191004
  Serious: Yes (Life-Threatening, Hospitalization, Other)
  Sender: FDA-Public Use
  Company Number: FR-ASCEND THERAPEUTICS-2060724

PATIENT
  Age: 64 Year
  Sex: Female

DRUGS (10)
  1. OLANZAPINE SANDOZ (OLANZAPINE) [Suspect]
     Active Substance: OLANZAPINE
     Route: 048
     Dates: start: 20160422, end: 20180423
  2. LEXOMIL (BROMAZEPAM) [Concomitant]
     Active Substance: BROMAZEPAM
     Route: 048
     Dates: start: 20160413, end: 201605
  3. LEPTICUR (TROPATEPINE HYDROCHLORIDE) [Concomitant]
     Active Substance: TROPATEPINE HYDROCHLORIDE
  4. OLANZAPINE SANDOZ (OLANZAPINE) [Suspect]
     Active Substance: OLANZAPINE
     Route: 048
     Dates: start: 20160413, end: 20160415
  5. SEROPLEX (ESCITALOPRAM OXALATE) [Concomitant]
     Active Substance: ESCITALOPRAM OXALATE
     Route: 048
     Dates: start: 20160422, end: 20160423
  6. ESTROGEL [Suspect]
     Active Substance: ESTRADIOL
     Indication: HYSTERECTOMY
     Dates: start: 2005, end: 2016
  7. SEROPLEX (ESCITALOPRAM OXALATE) [Concomitant]
     Active Substance: ESCITALOPRAM OXALATE
     Route: 048
     Dates: start: 20160413, end: 20160415
  8. VALIUM [Concomitant]
     Active Substance: DIAZEPAM
  9. ANAFRANIL [Concomitant]
     Active Substance: CLOMIPRAMINE HYDROCHLORIDE
     Route: 048
     Dates: start: 20160415, end: 20160422
  10. SOLIAN (AMISULPRIDE) [Concomitant]
     Route: 048
     Dates: start: 20160415, end: 20160422

REACTIONS (15)
  - Cor pulmonale acute [Unknown]
  - Cardiogenic shock [Unknown]
  - Immobile [Unknown]
  - Hypotension [Unknown]
  - Product use in unapproved indication [Unknown]
  - Ventricular dyskinesia [Unknown]
  - Depression [Unknown]
  - Pulmonary embolism [Recovered/Resolved]
  - Respiratory rate increased [Unknown]
  - Livedo reticularis [Unknown]
  - Phlebitis [Unknown]
  - Right ventricular dilatation [Unknown]
  - Dyspnoea [Unknown]
  - Circulatory collapse [Unknown]
  - Hypoxia [Unknown]

NARRATIVE: CASE EVENT DATE: 2016
